FAERS Safety Report 8014902-0 (Version None)
Quarter: 2011Q4

REPORT INFORMATION
  Report Type: 
  Country: None (occurrence: None)
  Receive Date: 20111229
  Receipt Date: 20111221
  Transmission Date: 20120403
  Serious: Yes (Life-Threatening, Hospitalization, Disabling)
  Sender: FDA-Public Use
  Company Number: FR-BAXTER-2011BH040452

PATIENT
  Age: 48 Year
  Sex: Male
  Weight: 102 kg

DRUGS (6)
  1. VINCRISTINE SULFATE [Suspect]
     Indication: NON-HODGKIN'S LYMPHOMA
     Route: 042
     Dates: start: 20060908, end: 20061218
  2. MABTHERA [Suspect]
     Indication: NON-HODGKIN'S LYMPHOMA
     Route: 042
     Dates: start: 20060908, end: 20061218
  3. CYCLOPHOSPHAMIDE [Suspect]
     Indication: NON-HODGKIN'S LYMPHOMA
     Route: 042
     Dates: start: 20060908, end: 20061218
  4. KETEK [Concomitant]
     Indication: SECRETION DISCHARGE
     Route: 048
     Dates: start: 20061201, end: 20061201
  5. DOXORUBICIN HCL [Suspect]
     Indication: NON-HODGKIN'S LYMPHOMA
     Route: 042
     Dates: start: 20060908, end: 20061218
  6. PREDNISONE TAB [Suspect]
     Indication: NON-HODGKIN'S LYMPHOMA
     Route: 048
     Dates: start: 20060909, end: 20061223

REACTIONS (3)
  - LIVER TRANSPLANT [None]
  - HEPATITIS FULMINANT [None]
  - HEPATITIS B [None]
